FAERS Safety Report 5161502-6 (Version None)
Quarter: 2006Q4

REPORT INFORMATION
  Report Type: 
  Country: None (occurrence: None)
  Receive Date: 20061130
  Receipt Date: 20060824
  Transmission Date: 20070319
  Serious: No
  Sender: FDA-Public Use
  Company Number: US-GLAXOSMITHKLINE-A0617991A

PATIENT
  Age: 59 Year
  Sex: Male

DRUGS (4)
  1. WELLBUTRIN XL [Suspect]
     Indication: DEPRESSION
     Dosage: 150MG PER DAY
     Route: 048
     Dates: start: 20060701, end: 20060801
  2. LISINOPRIL [Concomitant]
  3. NIASPAN [Concomitant]
  4. VYTORIN [Concomitant]

REACTIONS (2)
  - ALOPECIA [None]
  - HAIR COLOUR CHANGES [None]
